FAERS Safety Report 4682116-8 (Version None)
Quarter: 2005Q2

REPORT INFORMATION
  Report Type: 
  Country: None (occurrence: None)
  Receive Date: 20050531
  Receipt Date: 20050404
  Transmission Date: 20051028
  Serious: No
  Sender: FDA-Public Use
  Company Number: FABR-11070

PATIENT
  Age: 35 Year
  Sex: Male
  Weight: 75 kg

DRUGS (9)
  1. FABRAZYME [Suspect]
     Indication: FABRY'S DISEASE
     Dosage: 75 MG Q2WKS IV
     Route: 042
     Dates: start: 20040101
  2. BUPROPION [Concomitant]
  3. LEVOTHYROXINE [Concomitant]
  4. LISINOPRIL [Concomitant]
  5. ZOLOFT [Concomitant]
  6. TRILEPTAL [Concomitant]
  7. METHYLPREDNISOLONE [Concomitant]
  8. IBUPROFEN [Concomitant]
  9. BENADRYL [Concomitant]

REACTIONS (3)
  - CENTRAL LINE INFECTION [None]
  - SINUSITIS [None]
  - STAPHYLOCOCCAL BACTERAEMIA [None]
